FAERS Safety Report 8942737 (Version 2)
Quarter: 2012Q4

REPORT INFORMATION
  Report Type: Report from Study
  Country: JP (occurrence: JP)
  Receive Date: 20121204
  Receipt Date: 20121227
  Transmission Date: 20130627
  Serious: Yes (Death)
  Sender: FDA-Public Use
  Company Number: JP-PFIZER INC-2012299364

PATIENT
  Age: 84 Year
  Sex: Female
  Weight: 43.4 kg

DRUGS (7)
  1. SILDENAFIL CITRATE [Suspect]
     Indication: IDIOPATHIC PULMONARY ARTERIAL HYPERTENSION
     Dosage: 20 mg, 3x/day
     Route: 048
     Dates: start: 20090602
  2. ALTAT [Concomitant]
     Dosage: UNK
     Route: 048
  3. SELBEX [Concomitant]
     Dosage: UNK
     Route: 048
  4. MUCOSTA [Concomitant]
     Dosage: UNK
     Route: 048
  5. DIGOSIN [Concomitant]
     Dosage: UNK
     Route: 048
  6. LUPRAC [Concomitant]
     Dosage: UNK
     Route: 048
  7. NU LOTAN [Concomitant]
     Dosage: UNK
     Route: 048

REACTIONS (1)
  - Pneumonia aspiration [Fatal]
